FAERS Safety Report 8221072-2 (Version None)
Quarter: 2012Q1

REPORT INFORMATION
  Report Type: 
  Country: None (occurrence: None)
  Receive Date: 20120313
  Receipt Date: 20120305
  Transmission Date: 20120608
  Serious: Yes (Other)
  Sender: FDA-Public Use
  Company Number: 2011SP058499

PATIENT
  Age: 51 Year
  Sex: Female

DRUGS (3)
  1. RIBAVIRIN [Suspect]
     Indication: HEPATITIS C
     Dosage: 400;600 MG, BID, QD
     Dates: start: 20111215
  2. VICTRELIS [Suspect]
     Indication: HEPATITIS C
     Dosage: 800 MG, TID, PO
     Route: 048
     Dates: start: 20111021, end: 20111227
  3. PEG-INTRON [Suspect]
     Indication: HEPATITIS C
     Dosage: 800 MG, TID, PO
     Route: 048
     Dates: start: 20111021, end: 20111227

REACTIONS (4)
  - ANAEMIA [None]
  - THROAT IRRITATION [None]
  - WEIGHT DECREASED [None]
  - STOMATITIS [None]
